FAERS Safety Report 17961234 (Version 1)
Quarter: 2020Q2

REPORT INFORMATION
  Report Type: Spontaneous
  Country: US (occurrence: US)
  Receive Date: 20200629
  Receipt Date: 20200629
  Transmission Date: 20200714
  Serious: No
  Sender: FDA-Public Use
  Company Number: None

PATIENT
  Age: 71 Year
  Sex: Male
  Weight: 87 kg

DRUGS (1)
  1. HEPARIN (HEPARIN NA (PORK) 40000UNT/ML INJ) [Suspect]
     Active Substance: HEPARIN SODIUM
     Dates: start: 20190807, end: 20190807

REACTIONS (1)
  - Angioedema [None]

NARRATIVE: CASE EVENT DATE: 20190808
